FAERS Safety Report 20655719 (Version 7)
Quarter: 2025Q4

REPORT INFORMATION
  Report Type: Spontaneous
  Country: US (occurrence: US)
  Receive Date: 20220330
  Receipt Date: 20251215
  Transmission Date: 20260117
  Serious: No
  Sender: SANOFI AVENTIS
  Company Number: US-SA-SAC20220324001538

PATIENT
  Age: 52 Year
  Sex: Female

DRUGS (86)
  1. DUPIXENT [Suspect]
     Active Substance: DUPILUMAB
     Indication: Asthma
     Dosage: 300 MG, QOW
     Route: 058
     Dates: start: 20210423
  2. ALBUTEROL SULFATE [Concomitant]
     Active Substance: ALBUTEROL SULFATE
     Dosage: UNK
  3. AMMONIUM LACTATE [Concomitant]
     Active Substance: AMMONIUM LACTATE
     Dosage: UNK
  4. AMOXICILLIN\CLAVULANIC ACID [Concomitant]
     Active Substance: AMOXICILLIN\CLAVULANIC ACID
     Dosage: UNK
  5. AMOXICILLIN [Concomitant]
     Active Substance: AMOXICILLIN
     Dosage: UNK
  6. ATORVASTATIN [Concomitant]
     Active Substance: ATORVASTATIN
     Dosage: UNK
  7. AZELASTINE [Concomitant]
     Active Substance: AZELASTINE
     Dosage: UNK
  8. AZITHROMYCIN [Concomitant]
     Active Substance: AZITHROMYCIN
     Dosage: UNK
  9. BENZONATATE [Concomitant]
     Active Substance: BENZONATATE
     Dosage: UNK
  10. BUPROPION HYDROCHLORIDE [Concomitant]
     Active Substance: BUPROPION HYDROCHLORIDE
     Dosage: UNK
  11. BUDESONIDE\FORMOTEROL [Concomitant]
     Active Substance: BUDESONIDE\FORMOTEROL
     Dosage: UNK
  12. BUDESONIDE [Concomitant]
     Active Substance: BUDESONIDE
     Dosage: UNK
  13. BUPROPION HYDROCHLORIDE XL [Concomitant]
     Active Substance: BUPROPION HYDROCHLORIDE
     Dosage: UNK
  14. CLONAZEPAM [Concomitant]
     Active Substance: CLONAZEPAM
     Dosage: UNK
  15. CODEINE [Concomitant]
     Active Substance: CODEINE
     Dosage: UNK
  16. CEPHALEXIN MONOHYDRATE [Concomitant]
     Active Substance: CEPHALEXIN MONOHYDRATE
     Dosage: UNK
  17. CYANOCOBALAMIN [Concomitant]
     Active Substance: CYANOCOBALAMIN
     Dosage: UNK
  18. CYCLOBENZAPRINE [Concomitant]
     Active Substance: CYCLOBENZAPRINE
     Dosage: UNK
  19. DEPO-MEDROL [Concomitant]
     Active Substance: METHYLPREDNISOLONE ACETATE
     Dosage: UNK
  20. DEXAMETHASONE [Concomitant]
     Active Substance: DEXAMETHASONE
     Dosage: UNK
  21. AMFEPRAMONE [Concomitant]
     Active Substance: DIETHYLPROPION
     Dosage: UNK
  22. DICLOFENAC [Concomitant]
     Active Substance: DICLOFENAC
     Dosage: UNK
  23. DULOXETINE [Concomitant]
     Active Substance: DULOXETINE
     Dosage: UNK
  24. DOXYCYCLINE [Concomitant]
     Active Substance: DOXYCYCLINE
     Dosage: UNK
  25. ESTRADIOL [Concomitant]
     Active Substance: ESTRADIOL
     Dosage: UNK
  26. ESOMEPRA [ESOMEPRAZOLE MAGNESIUM] [Concomitant]
     Dosage: UNK
  27. FAMOTIDINE [Concomitant]
     Active Substance: FAMOTIDINE
     Dosage: UNK
  28. FLUCONAZOLE [Concomitant]
     Active Substance: FLUCONAZOLE
     Dosage: UNK
  29. FLUTICASONE [Concomitant]
     Active Substance: FLUTICASONE
     Dosage: UNK
  30. FLUZONE QUADRIVALENT NOS [Concomitant]
     Active Substance: INFLUENZA VIRUS VACCINE
     Dosage: UNK
  31. FOLIC ACID [Concomitant]
     Active Substance: FOLIC ACID
     Dosage: UNK
  32. GABAPENTIN [Concomitant]
     Active Substance: GABAPENTIN
     Dosage: UNK
  33. INCRUSE ELLIPTA [Concomitant]
     Active Substance: UMECLIDINIUM BROMIDE
     Dosage: UNK
  34. IPRATROPIUM [Concomitant]
     Active Substance: IPRATROPIUM
     Dosage: UNK
  35. KENALOG [Concomitant]
     Active Substance: TRIAMCINOLONE ACETONIDE
     Dosage: UNK
  36. KETOCONAZOLE [Concomitant]
     Active Substance: KETOCONAZOLE
     Dosage: UNK
  37. KETOROLAC [Concomitant]
     Active Substance: KETOROLAC TROMETHAMINE
     Dosage: UNK
  38. LAMOTRIGINE [Concomitant]
     Active Substance: LAMOTRIGINE
     Dosage: UNK
  39. LYRICA [Concomitant]
     Active Substance: PREGABALIN
     Dosage: UNK
  40. LEFLUNOMIDE [Concomitant]
     Active Substance: LEFLUNOMIDE
     Dosage: UNK
  41. LEVOFLOXACIN [Concomitant]
     Active Substance: LEVOFLOXACIN
     Dosage: UNK
  42. LIDOCAINE [Concomitant]
     Active Substance: LIDOCAINE
     Dosage: UNK
  43. LOSARTAN POTASSIUM [Concomitant]
     Active Substance: LOSARTAN POTASSIUM
     Dosage: UNK
  44. METHOCARBAMOL [Concomitant]
     Active Substance: METHOCARBAMOL
     Dosage: UNK
  45. MONTELUKAST [Concomitant]
     Active Substance: MONTELUKAST
     Dosage: UNK
  46. MUCINEX [Concomitant]
     Active Substance: GUAIFENESIN
     Dosage: UNK
  47. METHOTREXATE [Concomitant]
     Active Substance: METHOTREXATE
     Dosage: UNK
  48. MODERNA COVID-19 VACCINE [Concomitant]
     Active Substance: ELASOMERAN
     Dosage: UNK
  49. METHYLPREDNISOLONE [Concomitant]
     Active Substance: METHYLPREDNISOLONE
     Dosage: UNK
  50. ONDANSETRON [Concomitant]
     Active Substance: ONDANSETRON
     Dosage: UNK
  51. ORENCIA [Concomitant]
     Active Substance: ABATACEPT
     Dosage: UNK
  52. PREDNISONE [Concomitant]
     Active Substance: PREDNISONE
     Dosage: UNK
  53. PHENTERMINE [Concomitant]
     Active Substance: PHENTERMINE
     Dosage: UNK
  54. PREGABALIN [Concomitant]
     Active Substance: PREGABALIN
     Dosage: UNK
  55. PROAIR HFA [Concomitant]
     Active Substance: ALBUTEROL SULFATE
     Dosage: UNK
  56. ROPINIROLE [Concomitant]
     Active Substance: ROPINIROLE
     Dosage: UNK
  57. SERTRALINE [Concomitant]
     Active Substance: SERTRALINE HYDROCHLORIDE
     Dosage: UNK
  58. SPIRIVA [Concomitant]
     Active Substance: TIOTROPIUM BROMIDE MONOHYDRATE
     Dosage: UNK
  59. SYMBICORT [Concomitant]
     Active Substance: BUDESONIDE\FORMOTEROL FUMARATE DIHYDRATE
     Dosage: UNK
  60. TRAMADOL [Concomitant]
     Active Substance: TRAMADOL
     Dosage: UNK
  61. TRAZODONE [Concomitant]
     Active Substance: TRAZODONE HYDROCHLORIDE
     Dosage: UNK
  62. TRETINOIN [Concomitant]
     Active Substance: TRETINOIN
     Dosage: UNK
  63. TRIAMCINOLON [TRIAMCINOLONE ACETONIDE] [Concomitant]
     Dosage: UNK
  64. WELLBUTRIN XL [Concomitant]
     Active Substance: BUPROPION HYDROCHLORIDE
     Dosage: UNK
  65. WIXELA INHUB [Concomitant]
     Active Substance: FLUTICASONE PROPIONATE\SALMETEROL XINAFOATE
     Dosage: UNK
  66. ZOLOFT [Concomitant]
     Active Substance: SERTRALINE HYDROCHLORIDE
     Dosage: UNK
  67. ALBUTEROL [Concomitant]
     Active Substance: ALBUTEROL
     Dosage: UNK
  68. LEVALBUTEROL [Concomitant]
     Active Substance: LEVALBUTEROL
     Dosage: UNK
  69. CHOLESTYRAMINE [Concomitant]
     Active Substance: CHOLESTYRAMINE
     Dosage: UNK
  70. VALACYCLOVIR [Concomitant]
     Active Substance: VALACYCLOVIR HYDROCHLORIDE
     Dosage: UNK
  71. BUPROPION [Concomitant]
     Active Substance: BUPROPION
     Dosage: UNK
  72. HYDROCODONE [Concomitant]
     Active Substance: HYDROCODONE
     Dosage: UNK
  73. LIPITOR [Concomitant]
     Active Substance: ATORVASTATIN CALCIUM
     Dosage: UNK
  74. TOBRADEX [Concomitant]
     Active Substance: DEXAMETHASONE\TOBRAMYCIN
     Dosage: UNK
  75. METHYLPREDNISOLONE [Concomitant]
     Active Substance: METHYLPREDNISOLONE
     Dosage: UNK
  76. IPRATROPIUM BROMIDE AND ALBUTEROL SULFATE [Concomitant]
     Active Substance: ALBUTEROL SULFATE\IPRATROPIUM BROMIDE
     Dosage: UNK
  77. DULOXETINE [Concomitant]
     Active Substance: DULOXETINE
     Dosage: UNK
  78. BUSPIRONE [Concomitant]
     Active Substance: BUSPIRONE HYDROCHLORIDE
     Dosage: UNK
  79. POLYETHYLENE GLYCOL 3350 GRX [Concomitant]
     Dosage: UNK
  80. TERCONAZOLE [Concomitant]
     Active Substance: TERCONAZOLE
     Dosage: UNK
  81. LEVALBUTEROL [Concomitant]
     Active Substance: LEVALBUTEROL
     Dosage: UNK
  82. BUSPIRONE HCL [Concomitant]
     Active Substance: BUSPIRONE HYDROCHLORIDE
  83. CEPHALEXIN [Concomitant]
     Active Substance: CEPHALEXIN
  84. BUPROPION HYDROCHLORIDE [Concomitant]
     Active Substance: BUPROPION HYDROCHLORIDE
  85. METHYLPREDNISOLONE [Concomitant]
     Active Substance: METHYLPREDNISOLONE
  86. DOXYCYCLINE HYDROCHLORIDE [Concomitant]
     Active Substance: DOXYCYCLINE HYDROCHLORIDE

REACTIONS (4)
  - Pain [Unknown]
  - Restlessness [Unknown]
  - Asthma [Not Recovered/Not Resolved]
  - Drug ineffective [Unknown]

NARRATIVE: CASE EVENT DATE: 20250101
